FAERS Safety Report 25165933 (Version 2)
Quarter: 2025Q4

REPORT INFORMATION
  Report Type: Report from Study
  Country: EU (occurrence: EU)
  Receive Date: 20250407
  Receipt Date: 20251005
  Transmission Date: 20260118
  Serious: Yes (Death, Hospitalization, Other)
  Sender: SANOFI AVENTIS
  Company Number: EU-SA-2025SA096232

PATIENT
  Age: 68 Year
  Sex: Female

DRUGS (32)
  1. ISATUXIMAB [Suspect]
     Active Substance: ISATUXIMAB
     Indication: Plasma cell myeloma refractory
     Dosage: 700 MG, QW
     Route: 065
     Dates: start: 20240514, end: 20240604
  2. ISATUXIMAB [Suspect]
     Active Substance: ISATUXIMAB
     Dosage: 700 MG, BIW
     Route: 065
     Dates: start: 20240611, end: 20240625
  3. ISATUXIMAB [Suspect]
     Active Substance: ISATUXIMAB
     Dosage: 700 MG, BIW
     Route: 065
     Dates: start: 20240709, end: 20240723
  4. ISATUXIMAB [Suspect]
     Active Substance: ISATUXIMAB
     Dosage: 700 MG, BIW
     Route: 065
     Dates: start: 20240806, end: 20240821
  5. ISATUXIMAB [Suspect]
     Active Substance: ISATUXIMAB
     Dosage: 700 MG, BIW
     Route: 065
     Dates: start: 20240903, end: 20240917
  6. ISATUXIMAB [Suspect]
     Active Substance: ISATUXIMAB
     Dosage: 700 MG, BIW
     Route: 065
     Dates: start: 20241001, end: 20241015
  7. ISATUXIMAB [Suspect]
     Active Substance: ISATUXIMAB
     Dosage: 700 MG, BIW
     Route: 065
     Dates: start: 20241029, end: 20241112
  8. ISATUXIMAB [Suspect]
     Active Substance: ISATUXIMAB
     Dosage: 700 MG, BIW
     Route: 065
     Dates: start: 20241127, end: 20241211
  9. ISATUXIMAB [Suspect]
     Active Substance: ISATUXIMAB
     Dosage: 700 MG, BIW
     Route: 065
     Dates: start: 20250107, end: 20250121
  10. ISATUXIMAB [Suspect]
     Active Substance: ISATUXIMAB
     Dosage: 700 MG, BIW
     Route: 065
     Dates: start: 20250204, end: 20250218
  11. CARFILZOMIB [Suspect]
     Active Substance: CARFILZOMIB
     Indication: Plasma cell myeloma refractory
     Dosage: 32 MG, QD
     Route: 065
     Dates: start: 20240514, end: 20240515
  12. CARFILZOMIB [Suspect]
     Active Substance: CARFILZOMIB
     Dosage: 43 MG, QD
     Route: 065
     Dates: start: 20240521, end: 20240522
  13. CARFILZOMIB [Suspect]
     Active Substance: CARFILZOMIB
     Dosage: 57 MG, QD
     Route: 065
     Dates: start: 20240528, end: 20240529
  14. CARFILZOMIB [Suspect]
     Active Substance: CARFILZOMIB
     Dosage: 72 MG, BIW
     Route: 065
     Dates: start: 20240611, end: 20240626
  15. CARFILZOMIB [Suspect]
     Active Substance: CARFILZOMIB
     Dosage: 80 MG (09-10;16-17;23-24)
     Route: 065
     Dates: start: 20240709, end: 20240724
  16. CARFILZOMIB [Suspect]
     Active Substance: CARFILZOMIB
     Dosage: 80 MG (06-07;13-14;20-21)
     Route: 065
     Dates: start: 20240806, end: 20240821
  17. CARFILZOMIB [Suspect]
     Active Substance: CARFILZOMIB
     Dosage: 80 MG (03-04;10-11;17-18)
     Route: 065
     Dates: start: 20240903, end: 20240918
  18. CARFILZOMIB [Suspect]
     Active Substance: CARFILZOMIB
     Dosage: 80 MG (1-2;8-9;15-16)
     Route: 065
     Dates: start: 20241001, end: 20241016
  19. CARFILZOMIB [Suspect]
     Active Substance: CARFILZOMIB
     Dosage: 80 MG (29-30;5-6;12-13)
     Route: 065
     Dates: start: 20241029, end: 20241113
  20. CARFILZOMIB [Suspect]
     Active Substance: CARFILZOMIB
     Dosage: 80 MG (27-28NOV;3-4DEC;11-12DEC)
     Route: 065
     Dates: start: 20241127, end: 20241212
  21. CARFILZOMIB [Suspect]
     Active Substance: CARFILZOMIB
     Dosage: 80 MG (7-8JAN; 14-15JAN;21-22JAN)
     Route: 065
     Dates: start: 20250107, end: 20250122
  22. CARFILZOMIB [Suspect]
     Active Substance: CARFILZOMIB
     Dosage: 80 MG (4-5FEB;11-12FEB;18-19FEB)
     Route: 065
     Dates: start: 20250204, end: 20250219
  23. DEXAMETHASONE [Suspect]
     Active Substance: DEXAMETHASONE
     Indication: Plasma cell myeloma refractory
     Dosage: 20 MG, BIW
     Route: 065
     Dates: start: 20240514, end: 20240604
  24. DEXAMETHASONE [Suspect]
     Active Substance: DEXAMETHASONE
     Dosage: 20 MG, QW
     Route: 065
     Dates: start: 20240611, end: 20240626
  25. DEXAMETHASONE [Suspect]
     Active Substance: DEXAMETHASONE
     Dosage: 20 MG, QW
     Route: 065
     Dates: start: 20240709, end: 20240731
  26. DEXAMETHASONE [Suspect]
     Active Substance: DEXAMETHASONE
     Dosage: 20 MG, BIW
     Route: 065
     Dates: start: 20240806, end: 20240822
  27. DEXAMETHASONE [Suspect]
     Active Substance: DEXAMETHASONE
     Dosage: 20 MG, BIW
     Route: 065
     Dates: start: 20240903, end: 20240925
  28. DEXAMETHASONE [Suspect]
     Active Substance: DEXAMETHASONE
     Dosage: 20 MG, BIW
     Route: 065
     Dates: start: 20241001, end: 20241023
  29. DEXAMETHASONE [Suspect]
     Active Substance: DEXAMETHASONE
     Dosage: 20 MG (29-30;5-6;12-13;19-20)
     Route: 065
     Dates: start: 20241029, end: 20241120
  30. DEXAMETHASONE [Suspect]
     Active Substance: DEXAMETHASONE
     Dosage: 20 MG, BIW
     Route: 065
     Dates: start: 20241127, end: 20241219
  31. DEXAMETHASONE [Suspect]
     Active Substance: DEXAMETHASONE
     Dosage: 20 MG, BIW
     Route: 065
     Dates: start: 20250107, end: 20250129
  32. DEXAMETHASONE [Suspect]
     Active Substance: DEXAMETHASONE
     Dosage: 20 MG, BIW
     Route: 065
     Dates: start: 20250204, end: 20250226

REACTIONS (2)
  - COVID-19 [Fatal]
  - Pulmonary embolism [Fatal]

NARRATIVE: CASE EVENT DATE: 20250221
